FAERS Safety Report 8796440 (Version 1)
Quarter: 2012Q4

REPORT INFORMATION
  Report Type: 
  Country: NO (occurrence: NO)
  Receive Date: 20120919
  Receipt Date: 20120919
  Transmission Date: 20130627
  Serious: Yes (Hospitalization, Other)
  Sender: FDA-Public Use
  Company Number: NO-ASTRAZENECA-2012SE70728

PATIENT
  Sex: Female

DRUGS (3)
  1. ATACAND [Suspect]
     Indication: HYPERTENSION
     Route: 048
  2. ATACAND [Suspect]
     Indication: HYPERTENSION
     Dosage: 24 MG, SPLIT INTO 16 MG IN THE MORNING AND 8 MG IN THE EVENING
     Route: 048
  3. ZANIDIP [Suspect]
     Indication: HYPERTENSION
     Route: 065

REACTIONS (5)
  - Hypertension [Unknown]
  - Drug ineffective [Unknown]
  - Headache [Unknown]
  - Asthma [Unknown]
  - Dizziness [Unknown]
